FAERS Safety Report 6299887-X (Version None)
Quarter: 2009Q3

REPORT INFORMATION
  Report Type: 
  Country: None (occurrence: None)
  Receive Date: 20090806
  Receipt Date: 20090727
  Transmission Date: 20100115
  Serious: Yes (Other)
  Sender: FDA-Public Use
  Company Number: PHEH2009US08218

PATIENT
  Sex: Male

DRUGS (6)
  1. ZOMETA [Suspect]
     Dosage: UNK
  2. REVLIMID [Suspect]
     Indication: MULTIPLE MYELOMA
     Dosage: 15 MG, QD X 21DAYS
     Route: 048
     Dates: start: 20060301
  3. REVLIMID [Suspect]
     Dosage: 25 MG, QD
     Route: 048
     Dates: start: 20060301, end: 20090301
  4. PREDNISONE [Concomitant]
  5. ASPIRIN [Concomitant]
  6. PROVIGIL [Concomitant]

REACTIONS (2)
  - OSTEONECROSIS [None]
  - PAIN [None]
